FAERS Safety Report 5606318-9 (Version None)
Quarter: 2008Q1

REPORT INFORMATION
  Report Type: 
  Country: None (occurrence: None)
  Receive Date: 20080129
  Receipt Date: 20070605
  Transmission Date: 20080703
  Serious: No
  Sender: FDA-Public Use
  Company Number: A0654881A

PATIENT
  Age: 63 Year
  Sex: Male

DRUGS (2)
  1. WELLBUTRIN [Suspect]
     Indication: DEPRESSION
     Route: 065
  2. THERA FLU [Suspect]
     Indication: NASOPHARYNGITIS
     Dosage: 1PACK SINGLE DOSE
     Route: 048
     Dates: start: 20070501, end: 20070501

REACTIONS (3)
  - DRUG INTERACTION [None]
  - FEELING JITTERY [None]
  - RESTLESSNESS [None]
